FAERS Safety Report 18179957 (Version 1)
Quarter: 2020Q3

REPORT INFORMATION
  Report Type: Spontaneous
  Country: US (occurrence: US)
  Receive Date: 20200821
  Receipt Date: 20200821
  Transmission Date: 20201103
  Serious: No
  Sender: FDA-Public Use
  Company Number: US-SCIEGEN-2020SCISPO00232

PATIENT
  Sex: Female

DRUGS (1)
  1. NABUMETONE TABLETS [Suspect]
     Active Substance: NABUMETONE
     Indication: PRODUCT USED FOR UNKNOWN INDICATION
     Route: 048

REACTIONS (3)
  - Pain [Unknown]
  - Fatigue [Unknown]
  - Drug ineffective [Unknown]
